FAERS Safety Report 4547917-5 (Version None)
Quarter: 2004Q4

REPORT INFORMATION
  Report Type: 
  Country: None (occurrence: None)
  Receive Date: 20041227
  Receipt Date: 20041021
  Transmission Date: 20050328
  Serious: No
  Sender: FDA-Public Use
  Company Number: 04P-163-0278127-00

PATIENT
  Age: 61 Year
  Sex: Female
  Weight: 62.5964 kg

DRUGS (15)
  1. HUMIRA [Suspect]
     Indication: RHEUMATOID ARTHRITIS
     Dosage: 40 MG, 1 IN 2 WK, SUBCUTANEOUS
     Route: 058
     Dates: start: 20041008
  2. PREDNISONE [Concomitant]
  3. HYDROXYCHLOROQUINE PHOSPHATE [Concomitant]
  4. FOLINC ACID [Concomitant]
  5. METHOTREXATE [Concomitant]
  6. ESOMEPRAZOLE [Concomitant]
  7. AMILORIDE [Concomitant]
  8. NIFEDIPINE [Concomitant]
  9. RESTASIS [Concomitant]
  10. FLUTICASONE PROPIONATE [Concomitant]
  11. ALBUTEROL [Concomitant]
  12. LOPERAMIDE HCL [Concomitant]
  13. MULTI-VITAMINS [Concomitant]
  14. PYRIDOXINE HYDROCHLORIDE [Concomitant]
  15. TOCOPHEROL CONCENTRATE CAP [Concomitant]

REACTIONS (1)
  - INJECTION SITE BURNING [None]
